FAERS Safety Report 7863742-1 (Version None)
Quarter: 2011Q4

REPORT INFORMATION
  Report Type: 
  Country: None (occurrence: None)
  Receive Date: 20111027
  Receipt Date: 20101209
  Transmission Date: 20120403
  Serious: No
  Sender: FDA-Public Use
  Company Number: US-AMGEN-USASP2010008414

PATIENT
  Age: 55 Year
  Sex: Female

DRUGS (1)
  1. ENBREL [Suspect]
     Indication: RHEUMATOID ARTHRITIS
     Route: 058
     Dates: start: 20100422

REACTIONS (5)
  - INJECTION SITE INDURATION [None]
  - INCREASED TENDENCY TO BRUISE [None]
  - PRURITUS [None]
  - INJECTION SITE HAEMATOMA [None]
  - WHITE BLOOD CELL COUNT DECREASED [None]
